FAERS Safety Report 8094143-1 (Version None)
Quarter: 2012Q1

REPORT INFORMATION
  Report Type: 
  Country: None (occurrence: None)
  Receive Date: 20120130
  Receipt Date: 20120130
  Transmission Date: 20120608
  Serious: Yes (Hospitalization)
  Sender: FDA-Public Use
  Company Number: None

PATIENT
  Age: 59 Year
  Sex: Male
  Weight: 93 kg

DRUGS (1)
  1. EFFIENT [Suspect]
     Indication: STENT PLACEMENT
     Route: 048
     Dates: start: 20111201, end: 20120101

REACTIONS (3)
  - HAEMODYNAMIC INSTABILITY [None]
  - PLATELET FUNCTION TEST ABNORMAL [None]
  - RETROPERITONEAL HAEMATOMA [None]
